FAERS Safety Report 6599789-5 (Version None)
Quarter: 2010Q1

REPORT INFORMATION
  Report Type: 
  Country: None (occurrence: None)
  Receive Date: 20100224
  Receipt Date: 20100218
  Transmission Date: 20100710
  Serious: Yes (Other)
  Sender: FDA-Public Use
  Company Number: PHHY2010BR09929

PATIENT
  Age: 40 Year
  Sex: Male

DRUGS (3)
  1. ANAFRANIL [Suspect]
     Indication: DEPRESSION
     Dosage: 1 TABLET DAILY
  2. TEGRETOL-XR [Suspect]
     Indication: DEPRESSION
     Dosage: 200 MG, UNK
  3. TEGRETOL-XR [Suspect]
     Dosage: 400 MG, 1 TABLET DAILY

REACTIONS (10)
  - ABNORMAL BEHAVIOUR [None]
  - AGGRESSION [None]
  - ANXIETY [None]
  - CHEST DISCOMFORT [None]
  - CONVULSION [None]
  - DYSPNOEA [None]
  - FATIGUE [None]
  - FEAR OF DEATH [None]
  - HYPERTENSION [None]
  - SURGERY [None]
